FAERS Safety Report 25070334 (Version 2)
Quarter: 2025Q1

REPORT INFORMATION
  Report Type: Spontaneous
  Country: US (occurrence: US)
  Receive Date: 20250312
  Receipt Date: 20250313
  Transmission Date: 20250408
  Serious: Yes (Hospitalization, Other)
  Sender: PFIZER
  Company Number: US-PFIZER INC-PV202400053316

PATIENT
  Age: 68 Year
  Sex: Female
  Weight: 74.1 kg

DRUGS (2)
  1. INLYTA [Suspect]
     Active Substance: AXITINIB
     Indication: Renal cancer
     Dosage: TAKE 1 TABLET (5 MG TOTAL) BY MOUTH EVERY 12 (TWELVE) HOURS FOR 30 DAYS
     Route: 048
     Dates: start: 202404, end: 202408
  2. INLYTA [Suspect]
     Active Substance: AXITINIB
     Dosage: TAKE 1 TABLET (5 MG TOTAL) BY MOUTH EVERY 12 (TWELVE) HOURS
     Route: 048
     Dates: start: 2025

REACTIONS (4)
  - Device occlusion [Unknown]
  - Cholecystitis [Unknown]
  - Renal cancer [Unknown]
  - Malignant neoplasm progression [Unknown]

NARRATIVE: CASE EVENT DATE: 20240801
